FAERS Safety Report 19370083 (Version 1)
Quarter: 2021Q2

REPORT INFORMATION
  Report Type: Spontaneous
  Country: US (occurrence: US)
  Receive Date: 20210604
  Receipt Date: 20210604
  Transmission Date: 20210717
  Serious: No
  Sender: FDA-Public Use
  Company Number: US-GLAXOSMITHKLINE-US2021116913

PATIENT
  Sex: Male

DRUGS (3)
  1. SALBUTAMOL [Suspect]
     Active Substance: ALBUTEROL
     Indication: ASTHMA
     Dosage: UNK
     Route: 055
  2. VENTOLIN HFA [Suspect]
     Active Substance: ALBUTEROL SULFATE
     Indication: ASTHMA
     Dosage: UNKNOWN
     Route: 055
  3. SALBUTAMOL [Suspect]
     Active Substance: ALBUTEROL

REACTIONS (3)
  - Therapeutic response changed [Unknown]
  - Drug ineffective [Unknown]
  - Product substitution issue [Unknown]
